FAERS Safety Report 18445551 (Version 8)
Quarter: 2021Q4

REPORT INFORMATION
  Report Type: Report from Study
  Country: CA (occurrence: CA)
  Receive Date: 20201030
  Receipt Date: 20211211
  Transmission Date: 20220303
  Serious: Yes (Hospitalization, Other)
  Sender: FDA-Public Use
  Company Number: CA-TAKEDA-2016TUS022024

PATIENT
  Age: 45 Year
  Sex: Male

DRUGS (14)
  1. VEDOLIZUMAB [Suspect]
     Active Substance: VEDOLIZUMAB
     Indication: Crohn^s disease
     Dosage: 300 MILLIGRAM
     Route: 042
     Dates: start: 20160829
  2. VEDOLIZUMAB [Suspect]
     Active Substance: VEDOLIZUMAB
     Dosage: 300 MILLIGRAM
     Route: 042
  3. VEDOLIZUMAB [Suspect]
     Active Substance: VEDOLIZUMAB
     Dosage: 300 MILLIGRAM, Q6WEEKS
     Route: 042
     Dates: start: 20180620
  4. VEDOLIZUMAB [Suspect]
     Active Substance: VEDOLIZUMAB
     Dosage: 300 MILLIGRAM, Q6WEEKS
     Route: 042
  5. VEDOLIZUMAB [Suspect]
     Active Substance: VEDOLIZUMAB
     Dosage: 300 MILLIGRAM, Q4WEEKS
     Route: 042
     Dates: start: 20190619
  6. VEDOLIZUMAB [Suspect]
     Active Substance: VEDOLIZUMAB
     Dosage: 300 MILLIGRAM, Q4WEEKS
     Route: 042
  7. VEDOLIZUMAB [Suspect]
     Active Substance: VEDOLIZUMAB
     Dosage: 300 MILLIGRAM, Q4WEEKS
     Route: 042
  8. VEDOLIZUMAB [Suspect]
     Active Substance: VEDOLIZUMAB
     Dosage: 300 MILLIGRAM, Q4WEEKS
     Route: 042
  9. VEDOLIZUMAB [Suspect]
     Active Substance: VEDOLIZUMAB
     Dosage: 300 MILLIGRAM, Q4WEEKS
     Route: 042
  10. VEDOLIZUMAB [Suspect]
     Active Substance: VEDOLIZUMAB
     Dosage: 300 MILLIGRAM, Q4WEEKS
     Route: 042
  11. FOLIC ACID [Concomitant]
     Active Substance: FOLIC ACID
     Dosage: UNK
     Dates: start: 2015
  12. ITRACONAZOLE [Concomitant]
     Active Substance: ITRACONAZOLE
     Indication: Pneumonia fungal
     Dosage: UNK
     Dates: start: 201504
  13. ITRACONAZOLE [Concomitant]
     Active Substance: ITRACONAZOLE
     Indication: Fungal infection
  14. AZATHIOPRINE [Concomitant]
     Active Substance: AZATHIOPRINE
     Dosage: UNK
     Dates: start: 20141031

REACTIONS (25)
  - Intestinal obstruction [Recovered/Resolved]
  - Device dislocation [Unknown]
  - Rectal abscess [Unknown]
  - Haematochezia [Unknown]
  - Crohn^s disease [Unknown]
  - Abnormal faeces [Unknown]
  - Mucous stools [Unknown]
  - Muscle atrophy [Unknown]
  - Hypoaesthesia [Unknown]
  - Sensory loss [Unknown]
  - Tooth abscess [Recovering/Resolving]
  - Myalgia [Unknown]
  - Gastrointestinal inflammation [Unknown]
  - Constipation [Unknown]
  - Night blindness [Unknown]
  - Weight decreased [Unknown]
  - Fall [Unknown]
  - Gastrointestinal motility disorder [Unknown]
  - Asthenia [Unknown]
  - Abdominal pain [Unknown]
  - Feeling cold [Unknown]
  - Fatigue [Unknown]
  - Drug ineffective [Unknown]
  - Product dose omission issue [Unknown]
  - Off label use [Unknown]

NARRATIVE: CASE EVENT DATE: 20180101
